FAERS Safety Report 10555347 (Version 1)
Quarter: 2014Q4

REPORT INFORMATION
  Report Type: Spontaneous
  Country: US (occurrence: US)
  Receive Date: 20141030
  Receipt Date: 20141030
  Transmission Date: 20150529
  Serious: Yes (Other)
  Sender: FDA-Public Use
  Company Number: US-TEVA-518511USA

PATIENT
  Age: 26 Year
  Sex: Female

DRUGS (1)
  1. COPAXONE [Suspect]
     Active Substance: GLATIRAMER ACETATE
     Indication: MULTIPLE SCLEROSIS
     Route: 058
     Dates: start: 20140510

REACTIONS (5)
  - Heart rate increased [Unknown]
  - Dyspnoea [Unknown]
  - Anxiety [Unknown]
  - Skin burning sensation [Unknown]
  - Oedema [Unknown]

NARRATIVE: CASE EVENT DATE: 20141024
